FAERS Safety Report 7366277-8 (Version None)
Quarter: 2011Q1

REPORT INFORMATION
  Report Type: 
  Country: None (occurrence: None)
  Receive Date: 20110225
  Receipt Date: 20101109
  Transmission Date: 20110831
  Serious: Yes (Other)
  Sender: FDA-Public Use
  Company Number: 318195

PATIENT
  Age: 71 Year
  Sex: Female

DRUGS (8)
  1. EFFIENT (PRASUGREL HYDROCHLORIDE) [Concomitant]
  2. GLIPIZIDE [Concomitant]
  3. VICTOZA [Suspect]
     Indication: TYPE 2 DIABETES MELLITUS
     Dosage: 1.2 U, QD, SUBCUTANEOUS, 1.8 U, QD, SUBCUTANEOUS
     Route: 058
     Dates: start: 20100723
  4. VICTOZA [Suspect]
     Indication: TYPE 2 DIABETES MELLITUS
     Dosage: 1.2 U, QD, SUBCUTANEOUS, 1.8 U, QD, SUBCUTANEOUS
     Route: 058
     Dates: end: 20101004
  5. SIMVASTATIN [Concomitant]
  6. FOLIC ACID [Concomitant]
  7. ASPIRIN [Concomitant]
  8. LISINOPRIL [Concomitant]

REACTIONS (1)
  - PANCREATITIS [None]
